FAERS Safety Report 21328222 (Version 2)
Quarter: 2022Q4

REPORT INFORMATION
  Report Type: Report from Study
  Country: US (occurrence: US)
  Receive Date: 20220913
  Receipt Date: 20221102
  Transmission Date: 20230113
  Serious: Yes (Other)
  Sender: FDA-Public Use
  Company Number: US-ABBVIE-22K-163-4537422-00

PATIENT
  Sex: Female

DRUGS (3)
  1. IMBRUVICA [Suspect]
     Active Substance: IBRUTINIB
     Indication: Chronic lymphocytic leukaemia
     Route: 048
     Dates: start: 20180606
  2. IMBRUVICA [Suspect]
     Active Substance: IBRUTINIB
     Indication: Chronic lymphocytic leukaemia
     Route: 048
  3. OZEMPIC [Concomitant]
     Active Substance: SEMAGLUTIDE
     Indication: Weight decreased

REACTIONS (12)
  - Synovial cyst [Unknown]
  - Fatigue [Unknown]
  - Neuropathy peripheral [Unknown]
  - Procedural pain [Unknown]
  - Blood immunoglobulin G decreased [Unknown]
  - Blood iron decreased [Unknown]
  - Knee arthroplasty [Unknown]
  - Back injury [Unknown]
  - Mobility decreased [Unknown]
  - Flatulence [Unknown]
  - Decreased appetite [Unknown]
  - Epigastric discomfort [Unknown]
